FAERS Safety Report 5396143-9 (Version None)
Quarter: 2007Q3

REPORT INFORMATION
  Report Type: 
  Country: None (occurrence: None)
  Receive Date: 20070725
  Receipt Date: 20070718
  Transmission Date: 20080115
  Serious: Yes (Other)
  Sender: FDA-Public Use
  Company Number: PHBS2007BR12146

PATIENT
  Sex: Female

DRUGS (2)
  1. VISKALDIX [Suspect]
     Route: 048
  2. LASIX [Concomitant]

REACTIONS (7)
  - ANXIETY [None]
  - BLOOD CHOLESTEROL INCREASED [None]
  - BLOOD TRIGLYCERIDES INCREASED [None]
  - DEPRESSION [None]
  - DIABETES MELLITUS [None]
  - GENERAL PHYSICAL CONDITION ABNORMAL [None]
  - HYPOTHYROIDISM [None]
